FAERS Safety Report 10687155 (Version 1)
Quarter: 2015Q1

REPORT INFORMATION
  Report Type: Spontaneous
  Country: US (occurrence: US)
  Receive Date: 20150102
  Receipt Date: 20150102
  Transmission Date: 20150720
  Serious: Yes (Other)
  Sender: FDA-Public Use
  Company Number: US-CIPLA LTD.-2014US02922

PATIENT

DRUGS (4)
  1. GEMCITABINE [Suspect]
     Active Substance: GEMCITABINE\GEMCITABINE HYDROCHLORIDE
     Indication: UTERINE LEIOMYOSARCOMA
     Dosage: 900 MG/M2 OR 675 MG/M2 ON DAYS ONE AND EIGHT OVER 90 MIN
     Route: 042
  2. PEGFILGRASTIM [Concomitant]
     Active Substance: PEGFILGRASTIM
     Indication: UTERINE LEIOMYOSARCOMA
     Dosage: 6 MG ON DAY NINE OR 10
     Route: 058
  3. DOCETAXEL. [Suspect]
     Active Substance: DOCETAXEL
     Indication: UTERINE LEIOMYOSARCOMA
     Dosage: 100 MG/M2 OR 75 MG/M2 ON DAY EIGHT OVER 1 H
     Route: 042
  4. GRANULOCYTE-COLONYSTIMULATING FACTOR [Concomitant]
     Indication: UTERINE LEIOMYOSARCOMA
     Dosage: 150 ?G/M2 ON DAYS NINE THROUGH 15
     Route: 058

REACTIONS (1)
  - Neurotoxicity [Unknown]
